FAERS Safety Report 7265898-0 (Version None)
Quarter: 2011Q1

REPORT INFORMATION
  Report Type: 
  Country: None (occurrence: None)
  Receive Date: 20110131
  Receipt Date: 20110124
  Transmission Date: 20110831
  Serious: Yes (Other)
  Sender: FDA-Public Use
  Company Number: B0695642B

PATIENT
  Sex: Female

DRUGS (1)
  1. DEROXAT [Suspect]
     Dosage: 10MG PER DAY
     Route: 048

REACTIONS (3)
  - ABORTION INDUCED [None]
  - PLACENTAL CHORIOANGIOMA [None]
  - DRUG EXPOSURE DURING PREGNANCY [None]
